FAERS Safety Report 9171645 (Version 3)
Quarter: 2013Q2

REPORT INFORMATION
  Report Type: Spontaneous
  Country: DE (occurrence: DE)
  Receive Date: 20130319
  Receipt Date: 20130614
  Transmission Date: 20140414
  Serious: Yes (Hospitalization)
  Sender: FDA-Public Use
  Company Number: DE-GLAXOSMITHKLINE-D0079086A

PATIENT
  Sex: Female

DRUGS (4)
  1. VIANI [Suspect]
     Indication: ASTHMA
     Dosage: 1PUFF TWICE PER DAY
     Route: 055
  2. ATMADISC [Suspect]
     Route: 055
  3. SYMBICORT [Suspect]
     Route: 055
  4. SALBUTAMOL SPRAY [Concomitant]
     Route: 055

REACTIONS (18)
  - Convulsion [Unknown]
  - Angiopathy [Unknown]
  - Blood glucose increased [Unknown]
  - Nervousness [Unknown]
  - Muscle twitching [Unknown]
  - Drug ineffective [Unknown]
  - Increased appetite [Unknown]
  - Anxiety [Unknown]
  - Depression [Unknown]
  - Sinusitis [Unknown]
  - Myalgia [Unknown]
  - Muscle spasms [Unknown]
  - Abnormal behaviour [Unknown]
  - Aggression [Unknown]
  - Irritability [Unknown]
  - Frustration [Unknown]
  - Dyspnoea [Unknown]
  - Headache [Unknown]
